FAERS Safety Report 9227261 (Version 1)
Quarter: 2013Q2

REPORT INFORMATION
  Report Type: Spontaneous
  Country: US (occurrence: US)
  Receive Date: 20130412
  Receipt Date: 20130412
  Transmission Date: 20140414
  Serious: Yes (Hospitalization, Other)
  Sender: FDA-Public Use
  Company Number: PHEH2013US006367

PATIENT
  Age: 26 Year
  Sex: Female
  Weight: 77 kg

DRUGS (4)
  1. TEGRETOL [Suspect]
     Indication: TRIGEMINAL NEURALGIA
     Dosage: 200 MG, BID
     Route: 048
     Dates: start: 20130124, end: 20130221
  2. REBIF [Suspect]
     Indication: MULTIPLE SCLEROSIS
     Dosage: 8.8 UG, QW3 (THREE TIMES A WEEK)
     Route: 058
     Dates: start: 20130126
  3. REBIF [Suspect]
     Dosage: 22 UG, QW3 (THREE TIMES A WEEK)
     Route: 058
     Dates: start: 20130210, end: 20130210
  4. BUTALBITAL [Concomitant]
     Indication: HEADACHE
     Dosage: UNK UKN, UNK

REACTIONS (8)
  - Drug eruption [Recovering/Resolving]
  - Eye swelling [Unknown]
  - Lymphadenopathy [Recovering/Resolving]
  - Liver function test abnormal [Recovering/Resolving]
  - Leukopenia [Recovered/Resolved]
  - Pyrexia [Recovered/Resolved]
  - Erythema [Unknown]
  - Viral infection [Unknown]
